FAERS Safety Report 20392351 (Version 1)
Quarter: 2022Q1

REPORT INFORMATION
  Report Type: Report from Study
  Country: GB (occurrence: GB)
  Receive Date: 20220128
  Receipt Date: 20220128
  Transmission Date: 20220424
  Serious: Yes (Other)
  Sender: FDA-Public Use
  Company Number: GB-PFIZER INC-202200089253

PATIENT
  Age: 39 Year
  Sex: Female
  Weight: 136 kg

DRUGS (8)
  1. AVELUMAB [Suspect]
     Active Substance: AVELUMAB
     Indication: Product used for unknown indication
     Route: 042
     Dates: start: 20220117
  2. CHLORPHENIRAMINE MALEATE [Concomitant]
     Active Substance: CHLORPHENIRAMINE MALEATE
     Indication: Product used for unknown indication
     Route: 042
     Dates: start: 20220117, end: 20220117
  3. ACETAMINOPHEN [Concomitant]
     Active Substance: ACETAMINOPHEN
     Indication: Product used for unknown indication
     Route: 048
     Dates: start: 20220117, end: 20220117
  4. ONDANSETRON [Concomitant]
     Active Substance: ONDANSETRON
     Indication: Nausea
     Route: 048
     Dates: start: 20211208
  5. OMEPRAZOLE [Concomitant]
     Active Substance: OMEPRAZOLE
     Indication: Product used for unknown indication
     Route: 048
     Dates: start: 202112
  6. NAPROXEN [Concomitant]
     Active Substance: NAPROXEN
     Indication: Pain
     Route: 048
     Dates: start: 202112
  7. LACTULOSE [Concomitant]
     Active Substance: LACTULOSE
     Indication: Constipation
     Route: 048
     Dates: start: 20211208
  8. ALLOPURINOL [Concomitant]
     Active Substance: ALLOPURINOL
     Indication: Product used for unknown indication
     Route: 048
     Dates: start: 20220117

REACTIONS (2)
  - Tumour flare [Recovered/Resolved]
  - Back pain [Recovered/Resolved]

NARRATIVE: CASE EVENT DATE: 20220117
